FAERS Safety Report 5615466-9 (Version None)
Quarter: 2008Q1

REPORT INFORMATION
  Report Type: 
  Country: None (occurrence: None)
  Receive Date: 20080206
  Receipt Date: 20080124
  Transmission Date: 20080703
  Serious: Yes (Other)
  Sender: FDA-Public Use
  Company Number: US-AMGEN-QUU262243

PATIENT
  Age: 38 Year
  Sex: Male

DRUGS (6)
  1. ARANESP [Suspect]
     Indication: DIALYSIS
     Route: 058
     Dates: start: 20080101, end: 20080114
  2. ASPIRIN [Concomitant]
  3. IRON [Concomitant]
  4. K-DUR 10 [Concomitant]
  5. LOTREL [Concomitant]
  6. RENAGEL [Concomitant]

REACTIONS (3)
  - EYE SWELLING [None]
  - LIP SWELLING [None]
  - RASH PRURITIC [None]
